FAERS Safety Report 7389791-8 (Version None)
Quarter: 2011Q2

REPORT INFORMATION
  Report Type: 
  Country: None (occurrence: None)
  Receive Date: 20110401
  Receipt Date: 20110325
  Transmission Date: 20111010
  Serious: Yes (Death)
  Sender: FDA-Public Use
  Company Number: US-GENZYME-FLUD-1000931

PATIENT
  Age: 61 Year

DRUGS (5)
  1. FLUDARA [Suspect]
     Indication: STEM CELL TRANSPLANT
     Dosage: 30 MG/M2 X 4
     Route: 065
  2. CAMPATH [Suspect]
     Indication: STEM CELL TRANSPLANT
  3. CAMPATH [Suspect]
     Indication: MYELOFIBROSIS
     Dosage: 4 X 10 MG/KG
     Route: 065
  4. TACROLIMUS [Concomitant]
     Indication: PROPHYLAXIS AGAINST GRAFT VERSUS HOST DISEASE
     Route: 065
  5. FLUDARA [Suspect]
     Indication: MYELOFIBROSIS

REACTIONS (1)
  - ACUTE GRAFT VERSUS HOST DISEASE [None]
